FAERS Safety Report 9033092 (Version 1)
Quarter: 2013Q1

REPORT INFORMATION
  Report Type: Spontaneous
  Country: US (occurrence: US)
  Receive Date: 20130128
  Receipt Date: 20130128
  Transmission Date: 20140127
  Serious: No
  Sender: FDA-Public Use
  Company Number: US-PFIZER INC-2013028785

PATIENT
  Age: 70 Year
  Sex: Female
  Weight: 63.49 kg

DRUGS (3)
  1. ADVIL [Suspect]
     Indication: ARTHROPATHY
     Dosage: 600 MG, 3X/DAY
     Dates: start: 201301
  2. ATENOLOL [Concomitant]
     Indication: HEART RATE IRREGULAR
     Dosage: 25 MG, DAILY
  3. ADVIL LIQUI-GELS [Concomitant]
     Indication: ARTHROPATHY
     Dosage: 600 MG, 3X/DAY
     Dates: start: 20130104, end: 201301

REACTIONS (2)
  - Chest discomfort [Unknown]
  - Oropharyngeal discomfort [Unknown]
